FAERS Safety Report 4768669-X (Version None)
Quarter: 2005Q3

REPORT INFORMATION
  Report Type: 
  Country: None (occurrence: None)
  Receive Date: 20050913
  Receipt Date: 20050831
  Transmission Date: 20060218
  Serious: Yes (Other)
  Sender: FDA-Public Use
  Company Number: 2005123637

PATIENT
  Sex: Male
  Weight: 104.3273 kg

DRUGS (2)
  1. DETROL LA [Suspect]
     Indication: NOCTURIA
     Dosage: 1-1/2 YEARS AGO
  2. FLOMAX [Suspect]
     Indication: NOCTURIA
     Dates: end: 20050101

REACTIONS (3)
  - BENIGN PROSTATIC HYPERPLASIA [None]
  - CATARACT OPERATION [None]
  - DRUG EFFECT DECREASED [None]
